FAERS Safety Report 25256171 (Version 1)
Quarter: 2025Q2

REPORT INFORMATION
  Report Type: Spontaneous
  Country: US (occurrence: US)
  Receive Date: 20250430
  Receipt Date: 20250430
  Transmission Date: 20250717
  Serious: No
  Sender: MISSION PHARMACAL COMPANY
  Company Number: US-Mission Pharmacal Company-2175915

PATIENT
  Age: 64 Year
  Sex: Male

DRUGS (1)
  1. THIOLA EC [Suspect]
     Active Substance: TIOPRONIN
     Indication: Nephrolithiasis
     Dates: start: 20150805

REACTIONS (6)
  - Dizziness [Unknown]
  - Labile hypertension [Unknown]
  - Constipation [Unknown]
  - Fatigue [Unknown]
  - Dyspepsia [Unknown]
  - Headache [Unknown]
